FAERS Safety Report 10475070 (Version 1)
Quarter: 2014Q3

REPORT INFORMATION
  Report Type: Spontaneous
  Country: US (occurrence: None)
  Receive Date: 20140924
  Receipt Date: 20140924
  Transmission Date: 20150326
  Serious: Yes (Life-Threatening, Hospitalization)
  Sender: FDA-Public Use
  Company Number: None

PATIENT
  Age: 32 Year
  Sex: Female
  Weight: 68.04 kg

DRUGS (1)
  1. WELLBUTRIN [Suspect]
     Active Substance: BUPROPION HYDROCHLORIDE
     Indication: DEPRESSION
     Dosage: 2 PILLS, ONCE DAILY, TAKEN BY MOUTH
     Route: 048
     Dates: start: 20140826, end: 20140914

REACTIONS (8)
  - Aphasia [None]
  - Pain [None]
  - Anaphylactic shock [None]
  - Chest pain [None]
  - Urticaria [None]
  - Aphagia [None]
  - Arthralgia [None]
  - Pharyngeal oedema [None]

NARRATIVE: CASE EVENT DATE: 20140914
